FAERS Safety Report 21542788 (Version 1)
Quarter: 2022Q4

REPORT INFORMATION
  Report Type: Spontaneous
  Country: US (occurrence: None)
  Receive Date: 20221101
  Receipt Date: 20221101
  Transmission Date: 20230112
  Serious: Yes (Hospitalization)
  Sender: FDA-Public Use
  Company Number: None

PATIENT
  Sex: Female

DRUGS (1)
  1. DIMETHYL FUMARATE [Suspect]
     Active Substance: DIMETHYL FUMARATE
     Dosage: FREQUENCY : TWICE A DAY;?
     Route: 048

REACTIONS (8)
  - Transient ischaemic attack [None]
  - Weight increased [None]
  - Depression [None]
  - Death of relative [None]
  - Weight decreased [None]
  - Hyperphagia [None]
  - Seizure [None]
  - Cardiac operation [None]
